FAERS Safety Report 8816489 (Version 2)
Quarter: 2013Q1

REPORT INFORMATION
  Report Type: Spontaneous
  Country: DE (occurrence: None)
  Receive Date: 20120927
  Receipt Date: 20121004
  Transmission Date: 20140127
  Serious: Yes (Life-Threatening)
  Sender: FDA-Public Use
  Company Number: AUR-APL-2012-04062

PATIENT
  Age: 76 Year
  Sex: Female
  Weight: 60 kg

DRUGS (11)
  1. METFORMIN (METFORMIN) [Suspect]
     Indication: TYPE 2 DIABETES MELLITUS
     Route: 048
     Dates: start: 2008
  2. DIGITOXIN (DIGITOXIN) [Concomitant]
  3. METOPROLOL SUCCINATE (METOPROLOL SUCCINATE [Concomitant]
  4. RANITIDINE (RANITIDINE) [Concomitant]
  5. CALCIUM (CALCIUM) [Concomitant]
  6. AMYLASE (AMYLASE) [Concomitant]
  7. VITAMIN B1 (THIAMINE HYDROCHLORIDE [Concomitant]
  8. CLOPIDOGREL (CLOPIDOGREL [Concomitant]
  9. AMIODARONE (AMIODARONE) [Concomitant]
  10. TORSEMIDE [Concomitant]
  11. PHENPROCOUMON (PHENPROCUMON) [Concomitant]

REACTIONS (6)
  - Lactic acidosis [None]
  - Renal failure acute [None]
  - Alanine aminotransferase increased [None]
  - Aspartate aminotransferase increased [None]
  - White blood cell count increased [None]
  - Blood sodium decreased [None]
